FAERS Safety Report 7010013-1 (Version None)
Quarter: 2010Q3

REPORT INFORMATION
  Report Type: 
  Country: None (occurrence: None)
  Receive Date: 20100921
  Receipt Date: 20100413
  Transmission Date: 20110219
  Serious: Yes (Disabling)
  Sender: FDA-Public Use
  Company Number: APP201000549

PATIENT
  Age: 32 Year
  Sex: Female
  Weight: 45.8133 kg

DRUGS (6)
  1. SENSORCAINE [Suspect]
     Indication: MUSCULOSKELETAL PAIN
     Dosage: 100 ML, INTRA-ARTICULAR
     Route: 014
     Dates: start: 20050602
  2. ON-Q PAINBUSTER PAIN PUMP [Suspect]
     Indication: MUSCULOSKELETAL PAIN
     Dosage: LEFT SHOULDER
     Dates: start: 20050602
  3. NAROPIN [Suspect]
     Indication: PRODUCT USED FOR UNKNOWN INDICATION
     Dosage: 15 ML
     Dates: start: 20060105
  4. BUPIVACAINE HYDROCHLORIDE AND EPINEPHRINE [Suspect]
     Indication: PRODUCT USED FOR UNKNOWN INDICATION
     Dosage: 15 ML, ^WASH^
     Dates: start: 20060105
  5. LACTATED RINGERS (FLEBOBAG RING LACT) [Concomitant]
  6. ANCEF [Concomitant]

REACTIONS (5)
  - BURSITIS [None]
  - JOINT INJURY [None]
  - JOINT INSTABILITY [None]
  - MUSCULOSKELETAL PAIN [None]
  - ROTATOR CUFF SYNDROME [None]
